FAERS Safety Report 25473872 (Version 3)
Quarter: 2025Q3

REPORT INFORMATION
  Report Type: Report from Study
  Country: SA (occurrence: SA)
  Receive Date: 20250624
  Receipt Date: 20250807
  Transmission Date: 20251020
  Serious: Yes (Other)
  Sender: LUNDBECK
  Company Number: SA-LUNDBECK-DKLU4016064

PATIENT
  Age: 42 Year
  Sex: Female

DRUGS (1)
  1. VYEPTI [Suspect]
     Active Substance: EPTINEZUMAB-JJMR
     Indication: Migraine
     Dosage: 100 MILLIGRAM
     Route: 041
     Dates: start: 20250327, end: 20250804

REACTIONS (2)
  - Cardiac failure [Not Recovered/Not Resolved]
  - Abortion spontaneous [Not Recovered/Not Resolved]

NARRATIVE: CASE EVENT DATE: 20250601
